FAERS Safety Report 10249551 (Version 1)
Quarter: 2014Q2

REPORT INFORMATION
  Report Type: Spontaneous
  Country: US (occurrence: US)
  Receive Date: 20140620
  Receipt Date: 20140620
  Transmission Date: 20141212
  Serious: No
  Sender: FDA-Public Use
  Company Number: US-PFIZER INC-2014168051

PATIENT
  Age: 62 Year
  Sex: Female
  Weight: 73.92 kg

DRUGS (9)
  1. LYRICA [Suspect]
     Indication: FIBROMYALGIA
     Dosage: 50 MG, 2X/DAY
     Dates: start: 201406
  2. LYRICA [Suspect]
     Indication: NERVE INJURY
  3. LYRICA [Suspect]
     Indication: NEURALGIA
  4. SAVELLA [Suspect]
     Indication: FIBROMYALGIA
     Dosage: UNK
  5. ARICEPT [Concomitant]
     Indication: DEMENTIA ALZHEIMER^S TYPE
     Dosage: 10 MG, UNK
     Dates: start: 2013
  6. ARICEPT [Concomitant]
     Indication: AMNESIA
  7. MORPHINE SULFATE [Concomitant]
     Indication: PAIN
     Dosage: 15 MG, DAILY
  8. LEVOTHYROXINE [Concomitant]
     Indication: THYROID DISORDER
     Dosage: 25 MG, UNK
  9. VITAMIN D [Concomitant]
     Dosage: 1000 MG, UNK

REACTIONS (13)
  - Asthenopia [Unknown]
  - Vision blurred [Unknown]
  - Eye pain [Unknown]
  - Dizziness [Unknown]
  - Headache [Recovered/Resolved]
  - Insomnia [Unknown]
  - Increased appetite [Unknown]
  - Rhinorrhoea [Unknown]
  - Fatigue [Unknown]
  - Migraine [Unknown]
  - Feeling abnormal [Unknown]
  - Balance disorder [Unknown]
  - Sleep apnoea syndrome [Unknown]
